FAERS Safety Report 13584280 (Version 1)
Quarter: 2017Q2

REPORT INFORMATION
  Report Type: Spontaneous
  Country: US (occurrence: US)
  Receive Date: 20170525
  Receipt Date: 20170525
  Transmission Date: 20170830
  Serious: Yes (Other)
  Sender: FDA-Public Use
  Company Number: None

PATIENT
  Age: 33 Year
  Sex: Female
  Weight: 79.2 kg

DRUGS (21)
  1. NAPROXEN. [Concomitant]
     Active Substance: NAPROXEN
  2. XANJEL [Concomitant]
  3. CRANBERRY PILL [Concomitant]
     Active Substance: CRANBERRY
  4. PROTONIX [Concomitant]
     Active Substance: PANTOPRAZOLE SODIUM
  5. HYDROCODONE/ACETAMINOPHEN 10-325 [Suspect]
     Active Substance: ACETAMINOPHEN\HYDROCODONE
     Indication: RHEUMATOID ARTHRITIS
     Dosage: ?          QUANTITY:1 TABLET(S);?
     Route: 048
  6. MULTI VITAMIN [Concomitant]
     Active Substance: VITAMINS
  7. VITAMIN D [Concomitant]
     Active Substance: CHOLECALCIFEROL
  8. ALPRAZALAM [Concomitant]
  9. HYDROCODONE/ACETAMINOPHEN 10-325 [Suspect]
     Active Substance: ACETAMINOPHEN\HYDROCODONE
     Indication: SJOGREN^S SYNDROME
     Dosage: ?          QUANTITY:1 TABLET(S);?
     Route: 048
  10. FLEXERIL [Concomitant]
     Active Substance: CYCLOBENZAPRINE HYDROCHLORIDE
  11. PROPANOLOL [Concomitant]
     Active Substance: PROPRANOLOL HYDROCHLORIDE
  12. HYDROCODONE/ACETAMINOPHEN 10-325 [Suspect]
     Active Substance: ACETAMINOPHEN\HYDROCODONE
     Indication: SYSTEMIC LUPUS ERYTHEMATOSUS
     Dosage: ?          QUANTITY:1 TABLET(S);?
     Route: 048
  13. COLLOGAN [Concomitant]
  14. PLAQUINIL [Concomitant]
  15. VISTARIL [Concomitant]
     Active Substance: HYDROXYZINE PAMOATE
  16. COCONUT OIL [Concomitant]
     Active Substance: COCONUT OIL
  17. TUMERIC [Concomitant]
     Active Substance: HERBALS\TURMERIC
  18. ALLEGRA [Concomitant]
     Active Substance: FEXOFENADINE HYDROCHLORIDE
  19. HYLARONIC ACID [Concomitant]
  20. HYDROCODONE [Concomitant]
     Active Substance: HYDROCODONE
  21. LUTERA 28^S [Concomitant]

REACTIONS (1)
  - Product packaging quantity issue [None]

NARRATIVE: CASE EVENT DATE: 20170525
